FAERS Safety Report 7312292-X (Version None)
Quarter: 2011Q1

REPORT INFORMATION
  Report Type: 
  Country: None (occurrence: None)
  Receive Date: 20110224
  Receipt Date: 20110216
  Transmission Date: 20110831
  Serious: Yes (Hospitalization)
  Sender: FDA-Public Use
  Company Number: B0700818A

PATIENT
  Sex: Male
  Weight: 52 kg

DRUGS (28)
  1. CYLOCIDE [Suspect]
     Indication: STEM CELL TRANSPLANT
     Dosage: 200MGM2 PER DAY
     Dates: start: 20050120, end: 20050123
  2. VALTREX [Concomitant]
     Dosage: 500MG PER DAY
     Route: 048
     Dates: start: 20050217
  3. IBRUPROFEN [Concomitant]
     Dosage: 200MG PER DAY
     Route: 048
     Dates: start: 20050118, end: 20050118
  4. MAXIPIME [Concomitant]
     Dosage: 4G PER DAY
     Route: 042
     Dates: start: 20050129, end: 20050209
  5. MEROPEN [Concomitant]
     Dosage: 1G PER DAY
     Route: 042
     Dates: start: 20050210, end: 20050221
  6. GASTER D [Concomitant]
     Dosage: 20MG PER DAY
     Route: 048
     Dates: start: 20050117, end: 20050127
  7. ZANTAC [Concomitant]
     Dosage: 100MG PER DAY
     Dates: start: 20050129, end: 20050221
  8. VANCOMYCIN [Concomitant]
     Dosage: 1G PER DAY
     Route: 042
     Dates: start: 20050131, end: 20050209
  9. VEPESID [Suspect]
     Indication: STEM CELL TRANSPLANT
     Dosage: 200MGM2 PER DAY
     Route: 042
     Dates: start: 20050120, end: 20050123
  10. RITUXAN [Concomitant]
     Indication: STEM CELL TRANSPLANT
     Dosage: 375MGM2 PER DAY
     Route: 042
     Dates: start: 20050119, end: 20050119
  11. PRODIF [Concomitant]
     Dosage: 400MG PER DAY
     Route: 042
     Dates: start: 20050128, end: 20050205
  12. FUNGUARD [Concomitant]
     Dosage: 150MG PER DAY
     Route: 042
     Dates: start: 20050206, end: 20050216
  13. DIFLUCAN [Concomitant]
     Dosage: 200MG PER DAY
     Route: 048
     Dates: start: 20050217
  14. HAPTOGLOBIN [Concomitant]
     Dosage: 4IU3 PER DAY
     Route: 042
     Dates: start: 20050126, end: 20050126
  15. ATARAX [Concomitant]
     Dosage: 25MG PER DAY
     Dates: start: 20050126, end: 20050126
  16. VANCOMYCIN [Concomitant]
     Dosage: .5G PER DAY
     Route: 042
     Dates: start: 20050210, end: 20050214
  17. ALKERAN [Suspect]
     Indication: STEM CELL TRANSPLANT
     Dosage: 140MGM2 PER DAY
     Route: 042
     Dates: start: 20050124, end: 20050124
  18. SOLU-CORTEF [Concomitant]
     Dosage: 200MG PER DAY
     Dates: start: 20050126, end: 20050126
  19. NEUTROGIN [Concomitant]
     Dates: start: 20050221, end: 20050222
  20. ALESION [Concomitant]
     Dosage: 20MG PER DAY
     Route: 048
     Dates: start: 20050118, end: 20050118
  21. CRAVIT [Concomitant]
     Dosage: 300MG PER DAY
     Route: 048
     Dates: start: 20050224, end: 20050302
  22. BAKTAR [Concomitant]
     Dosage: 1IUAX PER DAY
     Route: 048
     Dates: start: 20050303
  23. CYMERIN [Suspect]
     Indication: STEM CELL TRANSPLANT
     Dosage: 300MGM2 PER DAY
     Dates: start: 20050119, end: 20050119
  24. DIFLUCAN [Concomitant]
     Dosage: 200MG PER DAY
     Route: 048
     Dates: start: 20050117, end: 20050127
  25. VALTREX [Concomitant]
     Dosage: 500MG PER DAY
     Route: 048
     Dates: start: 20050117, end: 20050127
  26. ATARAX [Concomitant]
     Dosage: 25MG PER DAY
     Dates: start: 20050128, end: 20050206
  27. VICCLOX [Concomitant]
     Dosage: 250MG PER DAY
     Route: 042
     Dates: start: 20050128, end: 20050216
  28. LEPETAN [Concomitant]
     Dosage: .2MG PER DAY
     Dates: start: 20050128, end: 20110206

REACTIONS (1)
  - PYREXIA [None]
